FAERS Safety Report 4439650-5 (Version None)
Quarter: 2004Q3

REPORT INFORMATION
  Report Type: 
  Country: None (occurrence: None)
  Receive Date: 20040827
  Receipt Date: 20040818
  Transmission Date: 20050211
  Serious: Yes (Hospitalization, Other)
  Sender: FDA-Public Use
  Company Number: 2004-06-1953

PATIENT
  Age: 57 Year
  Sex: Female

DRUGS (5)
  1. TEMODAL [Suspect]
     Indication: GLIOMA
     Dosage: SEE IMAGE
     Route: 048
     Dates: start: 20040428, end: 20040503
  2. TEMODAL [Suspect]
     Indication: GLIOMA
     Dosage: SEE IMAGE
     Route: 048
     Dates: start: 20040528
  3. DEROXAT [Suspect]
     Indication: DEPRESSION
     Dosage: 20 MG QD ORAL
     Route: 048
     Dates: start: 20040428, end: 20040521
  4. OMEPRAZOLE [Concomitant]
  5. CORTANCYL [Concomitant]

REACTIONS (5)
  - ALANINE AMINOTRANSFERASE INCREASED [None]
  - GAMMA-GLUTAMYLTRANSFERASE INCREASED [None]
  - HEPATIC ENZYME ABNORMAL [None]
  - LIVER DISORDER [None]
  - THROMBOCYTOPENIA [None]
